FAERS Safety Report 8866899 (Version 1)
Quarter: 2012Q4

REPORT INFORMATION
  Report Type: 
  Country: US (occurrence: US)
  Receive Date: 20121025
  Receipt Date: 20121025
  Transmission Date: 20130627
  Serious: Yes (Other)
  Sender: FDA-Public Use
  Company Number: US-AMGEN-USASP2012013839

PATIENT
  Age: 51 Year
  Sex: Female
  Weight: 87 kg

DRUGS (4)
  1. ENBREL [Suspect]
     Indication: PRODUCT USED FOR UNKNOWN INDICATION
     Dosage: 50 mg, qwk
     Route: 058
  2. METHOTREXATE [Concomitant]
     Dosage: 2.5 mg, UNK
  3. FOLIC ACID [Concomitant]
     Dosage: 1 mg, UNK
  4. NEXIUM                             /01479302/ [Concomitant]
     Dosage: 40 mg, UNK

REACTIONS (3)
  - Chest pain [Unknown]
  - Injection site erythema [Unknown]
  - Injection site swelling [Unknown]
